FAERS Safety Report 17506114 (Version 2)
Quarter: 2020Q1

REPORT INFORMATION
  Report Type: Spontaneous
  Country: JP (occurrence: JP)
  Receive Date: 20200306
  Receipt Date: 20200324
  Transmission Date: 20200409
  Serious: Yes (Hospitalization)
  Sender: FDA-Public Use
  Company Number: JP-TAKEDA-2020TJP004201AA

PATIENT
  Age: 33 Year
  Sex: Female

DRUGS (2)
  1. ENTYVIO [Suspect]
     Active Substance: VEDOLIZUMAB
     Indication: COLITIS ULCERATIVE
     Dosage: 300 MILLIGRAM
     Route: 041
     Dates: start: 2019, end: 2019
  2. MERCAPTOPURINE. [Concomitant]
     Active Substance: MERCAPTOPURINE
     Dosage: UNK
     Route: 065

REACTIONS (1)
  - Pneumonia mycoplasmal [Recovered/Resolved]

NARRATIVE: CASE EVENT DATE: 2019
